FAERS Safety Report 7444902-0 (Version None)
Quarter: 2011Q2

REPORT INFORMATION
  Report Type: 
  Country: None (occurrence: None)
  Receive Date: 20110429
  Receipt Date: 20110423
  Transmission Date: 20111010
  Serious: Yes (Hospitalization)
  Sender: FDA-Public Use
  Company Number: US-BRISTOL-MYERS SQUIBB COMPANY-15683766

PATIENT
  Age: 46 Year
  Sex: Male

DRUGS (3)
  1. SILDENAFIL [Suspect]
  2. WARFARIN SODIUM [Suspect]
     Indication: DEEP VEIN THROMBOSIS
  3. WARFARIN SODIUM [Suspect]
     Indication: CEREBROVASCULAR ACCIDENT

REACTIONS (1)
  - FRACTURE OF PENIS [None]
